FAERS Safety Report 10559048 (Version 3)
Quarter: 2014Q4

REPORT INFORMATION
  Report Type: Spontaneous
  Country: JP (occurrence: JP)
  Receive Date: 20141103
  Receipt Date: 20141215
  Transmission Date: 20150529
  Serious: Yes (Death)
  Sender: FDA-Public Use
  Company Number: JP-ORION CORPORATION ORION PHARMA-ENT 2014-0190

PATIENT
  Age: 78 Year
  Sex: Female

DRUGS (10)
  1. COMTAN [Suspect]
     Active Substance: ENTACAPONE
     Indication: PARKINSON^S DISEASE
     Dosage: STRENGTH: 100 MG
     Route: 048
     Dates: start: 20130625
  2. REMINYL [Concomitant]
     Active Substance: GALANTAMINE
     Indication: DEMENTIA ALZHEIMER^S TYPE
     Route: 065
     Dates: start: 20130320
  3. MEMARY [Concomitant]
     Active Substance: MEMANTINE HYDROCHLORIDE
     Indication: DEMENTIA ALZHEIMER^S TYPE
     Route: 065
     Dates: start: 20130320
  4. NEODOPASTON [Concomitant]
     Active Substance: CARBIDOPA\LEVODOPA
     Dosage: STRENGTH: 100 MG
     Route: 065
     Dates: start: 20130302
  5. TRERIEF [Concomitant]
     Active Substance: ZONISAMIDE
     Route: 065
     Dates: start: 20131030
  6. MYSLEE [Concomitant]
     Active Substance: ZOLPIDEM TARTRATE
     Route: 065
  7. MICAMLO [Concomitant]
     Active Substance: AMLODIPINE BESYLATE\TELMISARTAN
     Route: 065
     Dates: start: 20130329, end: 20130624
  8. MICARDIS [Concomitant]
     Active Substance: TELMISARTAN
     Route: 065
     Dates: start: 20130625
  9. MIRAPEX [Concomitant]
     Active Substance: PRAMIPEXOLE DIHYDROCHLORIDE
     Dosage: STRENGTH: 0.375 MG
     Route: 065
     Dates: start: 20130308
  10. FP-OD [Concomitant]
     Active Substance: SELEGILINE HYDROCHLORIDE
     Route: 065

REACTIONS (12)
  - Dyskinesia [Recovered/Resolved]
  - Initial insomnia [Recovered/Resolved]
  - Restlessness [Unknown]
  - Tremor [Recovered/Resolved]
  - Apathy [Unknown]
  - Completed suicide [Fatal]
  - Somnolence [Recovered/Resolved]
  - Hallucination [Unknown]
  - Delusion [Unknown]
  - Movement disorder [Unknown]
  - Clumsiness [Unknown]
  - Drug effect decreased [Unknown]

NARRATIVE: CASE EVENT DATE: 201310
